FAERS Safety Report 6377566-8 (Version None)
Quarter: 2009Q3

REPORT INFORMATION
  Report Type: 
  Country: None (occurrence: None)
  Receive Date: 20090925
  Receipt Date: 20090914
  Transmission Date: 20100115
  Serious: Yes (Life-Threatening)
  Sender: FDA-Public Use
  Company Number: JP-ROCHE-657191

PATIENT
  Sex: Male
  Weight: 63 kg

DRUGS (9)
  1. PEGASYS [Suspect]
     Indication: HEPATITIS C
     Route: 058
     Dates: start: 20081023, end: 20090506
  2. PEGASYS [Suspect]
     Route: 058
     Dates: start: 20090513, end: 20090520
  3. COPEGUS [Suspect]
     Indication: HEPATITIS C
     Route: 048
     Dates: start: 20081023, end: 20081209
  4. COPEGUS [Suspect]
     Dosage: NOTE: DIVIDED INTO 2 DOSES
     Route: 048
     Dates: start: 20081210, end: 20090421
  5. COPEGUS [Suspect]
     Route: 048
     Dates: start: 20090422, end: 20090624
  6. LOCHOL [Concomitant]
     Route: 048
     Dates: start: 20081030, end: 20090528
  7. AMARYL [Concomitant]
     Route: 048
     Dates: end: 20090528
  8. ACTOS [Concomitant]
     Route: 048
     Dates: end: 20090528
  9. SEIBULE [Concomitant]
     Route: 048
     Dates: start: 20090311, end: 20090528

REACTIONS (2)
  - DYSGEUSIA [None]
  - LYMPHOMA [None]
